FAERS Safety Report 12262223 (Version 1)
Quarter: 2016Q2

REPORT INFORMATION
  Report Type: Spontaneous
  Country: US (occurrence: US)
  Receive Date: 20160413
  Receipt Date: 20160413
  Transmission Date: 20160815
  Serious: No
  Sender: FDA-Public Use
  Company Number: US-HORIZON-PEN-0178-2016

PATIENT
  Age: 70 Year
  Sex: Female

DRUGS (7)
  1. DIGOXIN. [Concomitant]
     Active Substance: DIGOXIN
  2. PRILOSEC OTC [Concomitant]
     Active Substance: OMEPRAZOLE MAGNESIUM
  3. KCL [Concomitant]
     Active Substance: POTASSIUM CHLORIDE
  4. METOPROLOL. [Concomitant]
     Active Substance: METOPROLOL
  5. FUROSEMIDE. [Concomitant]
     Active Substance: FUROSEMIDE
  6. PENNSAID [Suspect]
     Active Substance: DICLOFENAC SODIUM
     Indication: OSTEOARTHRITIS
     Dosage: 1 FOIL PACKET AS NEEDED
     Dates: start: 20160330
  7. METFORMIN [Concomitant]
     Active Substance: METFORMIN HYDROCHLORIDE

REACTIONS (4)
  - Application site pruritus [Not Recovered/Not Resolved]
  - Off label use [Not Recovered/Not Resolved]
  - Application site rash [Not Recovered/Not Resolved]
  - Drug ineffective [Not Recovered/Not Resolved]

NARRATIVE: CASE EVENT DATE: 20160330
